FAERS Safety Report 5603309-9 (Version None)
Quarter: 2008Q1

REPORT INFORMATION
  Report Type: 
  Country: None (occurrence: None)
  Receive Date: 20080123
  Receipt Date: 20080108
  Transmission Date: 20080703
  Serious: Yes (Life-Threatening, Hospitalization)
  Sender: FDA-Public Use
  Company Number: 430023M07DEU

PATIENT
  Age: 73 Year
  Sex: Male

DRUGS (2)
  1. NOVANTRONE [Suspect]
     Indication: B-CELL SMALL LYMPHOCYTIC LYMPHOMA
     Dosage: 12 MG/M2, 1 IN 1 DAYS,; 12 MG/M2, 1 IN 14 DAYS,
     Dates: start: 20070201
  2. NOVANTRONE [Suspect]
     Indication: B-CELL SMALL LYMPHOCYTIC LYMPHOMA
     Dosage: 12 MG/M2, 1 IN 1 DAYS,; 12 MG/M2, 1 IN 14 DAYS,
     Dates: start: 20070601

REACTIONS (1)
  - VENTRICULAR TACHYCARDIA [None]
